FAERS Safety Report 14742679 (Version 1)
Quarter: 2018Q2

REPORT INFORMATION
  Report Type: Spontaneous
  Country: US (occurrence: US)
  Receive Date: 20180410
  Receipt Date: 20180410
  Transmission Date: 20180711
  Serious: Yes (Other)
  Sender: FDA-Public Use
  Company Number: US-009507513-1804USA002242

PATIENT
  Sex: Female

DRUGS (2)
  1. KEYTRUDA [Suspect]
     Active Substance: PEMBROLIZUMAB
     Indication: MALIGNANT MELANOMA
     Dosage: 2 MG/KG
     Route: 042
     Dates: start: 2015
  2. KEYTRUDA [Suspect]
     Active Substance: PEMBROLIZUMAB
     Indication: MELANOMA RECURRENT
     Dosage: 200 MG FOR 2 CYCLES
     Route: 042
     Dates: start: 201801, end: 201801

REACTIONS (2)
  - Musculoskeletal pain [Not Recovered/Not Resolved]
  - Melanoma recurrent [Not Recovered/Not Resolved]

NARRATIVE: CASE EVENT DATE: 201801
